FAERS Safety Report 11116112 (Version 1)
Quarter: 2015Q2

REPORT INFORMATION
  Report Type: Spontaneous
  Country: US (occurrence: None)
  Receive Date: 20150514
  Receipt Date: 20150514
  Transmission Date: 20150821
  Serious: Yes (Hospitalization)
  Sender: FDA-Public Use
  Company Number: None

PATIENT
  Age: 58 Year
  Sex: Female
  Weight: 61.6 kg

DRUGS (3)
  1. MERCAPTOPURINE. [Suspect]
     Active Substance: MERCAPTOPURINE
     Dates: end: 20150504
  2. CYTARABINE. [Suspect]
     Active Substance: CYTARABINE
     Dates: end: 20150501
  3. CYCLOPHOSPHAMIDE. [Suspect]
     Active Substance: CYCLOPHOSPHAMIDE
     Dates: start: 20150317, end: 20150421

REACTIONS (9)
  - Blood pressure decreased [None]
  - Respiratory rate increased [None]
  - Oxygen saturation decreased [None]
  - Respiratory distress [None]
  - Parainfluenzae virus infection [None]
  - Pyrexia [None]
  - Fall [None]
  - Tachycardia [None]
  - Urinary incontinence [None]

NARRATIVE: CASE EVENT DATE: 20150508
